FAERS Safety Report 5758579-3 (Version None)
Quarter: 2008Q2

REPORT INFORMATION
  Report Type: 
  Country: None (occurrence: None)
  Receive Date: 20080604
  Receipt Date: 20080527
  Transmission Date: 20081010
  Serious: Yes (Other)
  Sender: FDA-Public Use
  Company Number: B0430158A

PATIENT
  Age: 52 Year
  Sex: Male

DRUGS (5)
  1. EPIVIR [Suspect]
     Indication: HIV INFECTION
     Dosage: 40MG TWICE PER DAY
     Route: 048
     Dates: start: 19990929, end: 19991022
  2. ZERIT [Suspect]
     Indication: HIV INFECTION
     Dosage: 150MG TWICE PER DAY
     Route: 048
     Dates: start: 19990929, end: 19991022
  3. NORVIR [Suspect]
     Indication: HIV INFECTION
     Dosage: 400MG TWICE PER DAY
     Route: 048
     Dates: start: 19990929, end: 19991022
  4. FORTOVASE [Suspect]
     Indication: HIV INFECTION
     Dosage: 600MG THREE TIMES PER DAY
     Route: 048
     Dates: start: 19990929, end: 19991022
  5. VIRACEPT [Suspect]
     Indication: HIV INFECTION
     Route: 048

REACTIONS (4)
  - ABDOMINAL PAIN [None]
  - ANOREXIA [None]
  - HEPATIC FUNCTION ABNORMAL [None]
  - PANCREATITIS [None]
